FAERS Safety Report 7984837-8 (Version None)
Quarter: 2011Q4

REPORT INFORMATION
  Report Type: 
  Country: None (occurrence: None)
  Receive Date: 20111214
  Receipt Date: 20111209
  Transmission Date: 20120403
  Serious: Yes (Hospitalization)
  Sender: FDA-Public Use
  Company Number: 127403

PATIENT
  Age: 68 Year
  Sex: Female

DRUGS (1)
  1. LEVOTHYROXINE SODIUM [Suspect]
     Indication: HYPOTHYROIDISM
     Dosage: 25 ?G/DAY

REACTIONS (5)
  - BLOOD THYROID STIMULATING HORMONE INCREASED [None]
  - BLOOD PROLACTIN INCREASED [None]
  - STATUS EPILEPTICUS [None]
  - MEMORY IMPAIRMENT [None]
  - DEPRESSED LEVEL OF CONSCIOUSNESS [None]
